FAERS Safety Report 19785166 (Version 1)
Quarter: 2021Q3

REPORT INFORMATION
  Report Type: Spontaneous
  Country: US (occurrence: US)
  Receive Date: 20210903
  Receipt Date: 20210903
  Transmission Date: 20211014
  Serious: Yes (Other)
  Sender: FDA-Public Use
  Company Number: None

PATIENT
  Age: 38 Year
  Sex: Female
  Weight: 58.5 kg

DRUGS (1)
  1. CIPROFLOXACIN. [Suspect]
     Active Substance: CIPROFLOXACIN
     Indication: URINARY TRACT INFECTION
     Dates: start: 20210806, end: 20210809

REACTIONS (11)
  - Dysstasia [None]
  - Myalgia [None]
  - Pain in extremity [None]
  - Rhabdomyolysis [None]
  - Joint instability [None]
  - Bedridden [None]
  - Gait inability [None]
  - Nervousness [None]
  - Arthropathy [None]
  - Tendon disorder [None]
  - Hypoaesthesia [None]

NARRATIVE: CASE EVENT DATE: 20210806
